FAERS Safety Report 5142225-6 (Version None)
Quarter: 2006Q4

REPORT INFORMATION
  Report Type: 
  Country: None (occurrence: None)
  Receive Date: 20061102
  Receipt Date: 20061027
  Transmission Date: 20070319
  Serious: Yes (Death, Hospitalization)
  Sender: FDA-Public Use
  Company Number: US-AVENTIS-200621210GDDC

PATIENT
  Age: 71 Year
  Sex: Male
  Weight: 79.5 kg

DRUGS (15)
  1. TAXOTERE [Suspect]
     Indication: SQUAMOUS CELL CARCINOMA
     Route: 042
     Dates: start: 20060929, end: 20061013
  2. CODE UNBROKEN [Suspect]
     Indication: SQUAMOUS CELL CARCINOMA
     Route: 048
     Dates: start: 20060929, end: 20061021
  3. PROTONIX [Concomitant]
     Dosage: DOSE: UNK
  4. ZOSYN [Concomitant]
     Dosage: DOSE: UNK
  5. ALOXI [Concomitant]
     Dosage: DOSE: UNK
  6. BENADRYL                           /00000402/ [Concomitant]
     Dosage: DOSE: UNK
  7. DECADRON                           /00016001/ [Concomitant]
     Dosage: DOSE: UNK
  8. DIOVANE [Concomitant]
     Dosage: DOSE: UNK
  9. DOPAMINE HCL IN 5% DEXTROSE [Concomitant]
     Dosage: DOSE: UNK
  10. LEVOTHYROXINE SODIUM [Concomitant]
     Dosage: DOSE: UNK
  11. LORAZEPAM [Concomitant]
     Dosage: DOSE: UNK
  12. OXYCODONE HCL [Concomitant]
     Dosage: DOSE: UNK
  13. PREVACID [Concomitant]
     Dosage: DOSE: UNK
  14. PROMETHAZINE [Concomitant]
     Dosage: DOSE: UNK
  15. DEXAMETHASONE TAB [Concomitant]
     Dosage: DOSE: UNK

REACTIONS (13)
  - ANOREXIA [None]
  - BLOOD GLUCOSE INCREASED [None]
  - DEHYDRATION [None]
  - DIARRHOEA [None]
  - DYSENTERY [None]
  - HYPOTENSION [None]
  - LOSS OF CONSCIOUSNESS [None]
  - NAUSEA [None]
  - PNEUMONIA [None]
  - PNEUMONIA ASPIRATION [None]
  - PYREXIA [None]
  - RENAL FAILURE [None]
  - VOMITING [None]
